FAERS Safety Report 18854972 (Version 2)
Quarter: 2021Q1

REPORT INFORMATION
  Report Type: Spontaneous
  Country: US (occurrence: US)
  Receive Date: 20210205
  Receipt Date: 20210305
  Transmission Date: 20210420
  Serious: No
  Sender: FDA-Public Use
  Company Number: US-MYLANLABS-2021M1006266

PATIENT
  Sex: Female
  Weight: 46 kg

DRUGS (5)
  1. ELOQUINE [Concomitant]
     Active Substance: MEFLOQUINE HYDROCHLORIDE
     Dosage: UNK
  2. MIDODRINE HYDROCHLORIDE TABLETS USP [Suspect]
     Active Substance: MIDODRINE HYDROCHLORIDE
     Dosage: (1 TABLET IN THE MORNING BEFORE BREAKFAST AND 1 IN THE AFTERNOON AROUND 4PM
     Route: 048
  3. MIDODRINE HYDROCHLORIDE TABLETS USP [Suspect]
     Active Substance: MIDODRINE HYDROCHLORIDE
     Indication: HYPOTENSION
     Dosage: 10 MILLIGRAM, TID
     Route: 048
  4. MIDODRINE HYDROCHLORIDE TABLETS USP [Suspect]
     Active Substance: MIDODRINE HYDROCHLORIDE
     Dosage: UNK
     Route: 048
  5. METOPROLOL. [Concomitant]
     Active Substance: METOPROLOL
     Indication: HYPERTENSION
     Dosage: 50 MILLIGRAM, QD

REACTIONS (2)
  - Intentional product misuse [Not Recovered/Not Resolved]
  - Off label use [Not Recovered/Not Resolved]
